FAERS Safety Report 12133727 (Version 1)
Quarter: 2016Q1

REPORT INFORMATION
  Report Type: Spontaneous
  Country: JP (occurrence: JP)
  Receive Date: 20160301
  Receipt Date: 20160301
  Transmission Date: 20160526
  Serious: Yes (Other)
  Sender: FDA-Public Use
  Company Number: JP-ACCORD-038083

PATIENT
  Age: 60 Year
  Sex: Female

DRUGS (1)
  1. GEMCITABINE/GEMCITABINE HYDROCHLORIDE [Suspect]
     Active Substance: GEMCITABINE\GEMCITABINE HYDROCHLORIDE
     Indication: ANGIOSARCOMA
     Dosage: INITIALLY STARTED WEEKLY (1000 MG,700 MG/M2) THEN DOSE REDUCED TO 800 MG BIWEEKLY AND THEN WITHDRAWN

REACTIONS (5)
  - Neutropenia [Unknown]
  - Influenza like illness [Unknown]
  - Condition aggravated [None]
  - Angiosarcoma [None]
  - Purpura [None]
